FAERS Safety Report 4649744-7 (Version None)
Quarter: 2005Q2

REPORT INFORMATION
  Report Type: 
  Country: None (occurrence: None)
  Receive Date: 20050428
  Receipt Date: 20050428
  Transmission Date: 20051028
  Serious: Yes (Life-Threatening)
  Sender: FDA-Public Use
  Company Number: None

PATIENT
  Sex: Female
  Weight: 65.3 kg

DRUGS (2)
  1. INFED [Suspect]
     Indication: ANAEMIA
     Dosage: 25MG  DAILY  INTRAVENOU
     Route: 042
     Dates: start: 20050412, end: 20050423
  2. HERCEPTIN [Concomitant]

REACTIONS (9)
  - ANAPHYLACTOID REACTION [None]
  - CHILLS [None]
  - DIARRHOEA [None]
  - DISORIENTATION [None]
  - DUODENAL ULCER HAEMORRHAGE [None]
  - DYSPNOEA [None]
  - NAUSEA [None]
  - SYNCOPE [None]
  - VOMITING [None]
